FAERS Safety Report 18169564 (Version 1)
Quarter: 2020Q3

REPORT INFORMATION
  Report Type: Spontaneous
  Country: US (occurrence: US)
  Receive Date: 20200819
  Receipt Date: 20200819
  Transmission Date: 20201103
  Serious: Yes (Death, Hospitalization)
  Sender: FDA-Public Use
  Company Number: None

PATIENT
  Sex: Female
  Weight: 62.2 kg

DRUGS (4)
  1. DAUNORUBICIN [Concomitant]
     Active Substance: DAUNORUBICIN
  2. PREDNISOLONE. [Suspect]
     Active Substance: PREDNISOLONE
  3. VINCRISTINE SULFATE. [Concomitant]
     Active Substance: VINCRISTINE SULFATE
  4. ONCASPAR [Suspect]
     Active Substance: PEGASPARGASE

REACTIONS (9)
  - Cerebral venous thrombosis [None]
  - Brain oedema [None]
  - Pulmonary embolism [None]
  - Febrile neutropenia [None]
  - Hypercoagulation [None]
  - Cerebral haemorrhage [None]
  - Hydrocephalus [None]
  - Photophobia [None]
  - Cerebral infarction [None]

NARRATIVE: CASE EVENT DATE: 20200702
